APPROVED DRUG PRODUCT: EPIDUO FORTE
Active Ingredient: ADAPALENE; BENZOYL PEROXIDE
Strength: 0.3%;2.5%
Dosage Form/Route: GEL;TOPICAL
Application: N207917 | Product #001 | TE Code: AB
Applicant: GALDERMA LABORATORIES INC
Approved: Jul 15, 2015 | RLD: Yes | RS: Yes | Type: RX